FAERS Safety Report 23314179 (Version 1)
Quarter: 2023Q4

REPORT INFORMATION
  Report Type: Report from Study
  Country: US (occurrence: US)
  Receive Date: 20231219
  Receipt Date: 20231219
  Transmission Date: 20240110
  Serious: Yes (Other)
  Sender: FDA-Public Use
  Company Number: US-JAZZ PHARMACEUTICALS-2023-US-005595

PATIENT
  Age: 69 Year
  Sex: Male

DRUGS (9)
  1. XYREM [Suspect]
     Active Substance: SODIUM OXYBATE
     Indication: Narcolepsy
     Dosage: UNK
  2. OMEPRAZOLE [Concomitant]
     Active Substance: OMEPRAZOLE
     Dosage: UNK
     Dates: start: 20150911
  3. ROSUVASTATIN CALCIUM [Concomitant]
     Active Substance: ROSUVASTATIN CALCIUM
     Dosage: UNK
     Dates: start: 20150911
  4. ADENOSINE [Concomitant]
     Active Substance: ADENOSINE
     Dosage: UNK
     Dates: start: 20150911
  5. PROCARDIA [Concomitant]
     Active Substance: NIFEDIPINE
     Dosage: UNK
     Dates: start: 20150911
  6. ACIDOPHILUS [Concomitant]
     Active Substance: LACTOBACILLUS ACIDOPHILUS
     Dosage: UNK
     Dates: start: 20150911
  7. VITAMINS NOS [Concomitant]
     Active Substance: VITAMINS
     Dosage: 400
     Dates: start: 20150911
  8. CHOLECALCIFEROL [Concomitant]
     Active Substance: CHOLECALCIFEROL
     Dosage: 400
     Dates: start: 20150911
  9. ALCOHOL [Concomitant]
     Active Substance: ALCOHOL
     Dosage: UNK
     Dates: start: 20010101

REACTIONS (3)
  - Plasma cell myeloma [Unknown]
  - Surgery [Unknown]
  - Illness [Unknown]

NARRATIVE: CASE EVENT DATE: 20220901
